FAERS Safety Report 18232116 (Version 1)
Quarter: 2020Q3

REPORT INFORMATION
  Report Type: Spontaneous
  Country: US (occurrence: US)
  Receive Date: 20200904
  Receipt Date: 20200904
  Transmission Date: 20201103
  Serious: No
  Sender: FDA-Public Use
  Company Number: US-MYLANLABS-2020M1075180

PATIENT
  Sex: Female

DRUGS (1)
  1. VERAPAMIL HYDROCHLORIDE EXTENDED?RELEASE TABLETS, USP [Suspect]
     Active Substance: VERAPAMIL HYDROCHLORIDE
     Indication: BLOOD PRESSURE ABNORMAL
     Dosage: QD (180 MG, ONE TO TWO TIMES A DAY)
     Route: 065

REACTIONS (1)
  - Drug ineffective [Unknown]
